FAERS Safety Report 5714556-X (Version None)
Quarter: 2008Q2

REPORT INFORMATION
  Report Type: 
  Country: None (occurrence: None)
  Receive Date: 20080421
  Receipt Date: 20080410
  Transmission Date: 20081010
  Serious: Yes (Death)
  Sender: FDA-Public Use
  Company Number: 2008-175525-NL

PATIENT
  Sex: Female

DRUGS (18)
  1. MIRTAZAPINE [Suspect]
     Dosage: 30 MG QD
  2. IPRATROPIUM BROMIDE [Concomitant]
  3. LACTULOSE [Concomitant]
  4. LEVOTHYROXINE SODIUM [Concomitant]
  5. FLUTICASONE PROPIONATE [Concomitant]
  6. FUROSEMIDE [Concomitant]
  7. GABAPENTIN [Concomitant]
  8. ACETYLSALICYLIC ACID SRT [Concomitant]
  9. ALENDRONATE SODIUM [Concomitant]
  10. PREDNISOLONE [Concomitant]
  11. PANTOPRAZOLE SODIUM [Concomitant]
  12. GALANTAMINE [Concomitant]
  13. SENNA ALEXANDRINA FRUIT [Concomitant]
  14. ACETAMINOPHEN W/ CODEINE [Concomitant]
  15. TIOTROPIUM BROMIDE [Concomitant]
  16. AMINOPHYLLINE [Concomitant]
  17. ZOPICLONE [Concomitant]
  18. SPIRONOLACTONE [Concomitant]

REACTIONS (2)
  - BRONCHITIS [None]
  - CHRONIC OBSTRUCTIVE PULMONARY DISEASE [None]
